FAERS Safety Report 19840762 (Version 1)
Quarter: 2021Q3

REPORT INFORMATION
  Report Type: Spontaneous
  Country: CN (occurrence: CN)
  Receive Date: 20210915
  Receipt Date: 20210915
  Transmission Date: 20211014
  Serious: Yes (Other)
  Sender: FDA-Public Use
  Company Number: CN-EISAI MEDICAL RESEARCH-EC-2021-099307

PATIENT
  Age: 44 Year
  Sex: Male
  Weight: 52 kg

DRUGS (2)
  1. RABEPRAZOLE [Suspect]
     Active Substance: RABEPRAZOLE
     Indication: ABDOMINAL PAIN
     Route: 048
     Dates: start: 20210728, end: 20210801
  2. TEPRENONE [Concomitant]
     Active Substance: TEPRENONE
     Indication: ABDOMINAL PAIN
     Route: 048
     Dates: start: 20210730, end: 20210801

REACTIONS (1)
  - Hepatic function abnormal [Recovering/Resolving]

NARRATIVE: CASE EVENT DATE: 20210801
